FAERS Safety Report 5422101-1 (Version None)
Quarter: 2007Q3

REPORT INFORMATION
  Report Type: 
  Country: None (occurrence: None)
  Receive Date: 20070822
  Receipt Date: 20070815
  Transmission Date: 20080115
  Serious: Yes (Hospitalization)
  Sender: FDA-Public Use
  Company Number: HQWYE555115AUG07

PATIENT
  Sex: Male

DRUGS (8)
  1. PROPRANOLOL HYDROCHLORIDE [Suspect]
     Route: 048
     Dates: start: 20070626, end: 20070715
  2. MAXILASE 3000 [Concomitant]
     Dosage: 3 DAILY, UNSPECIFIED DOSE FORM
     Route: 048
     Dates: start: 20070705, end: 20070706
  3. ATARAX [Concomitant]
     Dosage: DOSE UNKNOWN
     Route: 065
     Dates: start: 20070711
  4. DOLIPRANE [Concomitant]
     Dosage: DOSE UNKNOWN
     Route: 048
     Dates: start: 20070707, end: 20070713
  5. LYSOPAINE [Concomitant]
     Dosage: 1 DAILY, DOSE FORM UNSPECIFIED
     Route: 048
     Dates: start: 20070704, end: 20070704
  6. CETIRIZINE HCL [Concomitant]
     Dosage: DOSE UNKNOWN
     Route: 065
     Dates: start: 20070711
  7. NEO-MERCAZOLE TAB [Suspect]
     Route: 048
     Dates: start: 20070626, end: 20070713
  8. RHINADVIL [Concomitant]
     Dosage: 2 DAILY, UNSPECIFIED DOSE FORM
     Route: 048
     Dates: start: 20070706, end: 20070706

REACTIONS (5)
  - ALANINE AMINOTRANSFERASE INCREASED [None]
  - DRUG RASH WITH EOSINOPHILIA AND SYSTEMIC SYMPTOMS [None]
  - GAMMA-GLUTAMYLTRANSFERASE INCREASED [None]
  - HYPERGLYCAEMIA [None]
  - HYPOTENSION [None]
